FAERS Safety Report 13421403 (Version 1)
Quarter: 2017Q2

REPORT INFORMATION
  Report Type: Spontaneous
  Country: KR (occurrence: KR)
  Receive Date: 20170410
  Receipt Date: 20170410
  Transmission Date: 20170830
  Serious: Yes (Other)
  Sender: FDA-Public Use
  Company Number: KR-LUPIN PHARMACEUTICALS INC.-2016-04009

PATIENT
  Age: 31 Year
  Sex: Female

DRUGS (1)
  1. LORAZEPAM. [Suspect]
     Active Substance: LORAZEPAM
     Indication: EPILEPSY
     Dosage: TWO SEPARATE 2 MG DOSES
     Route: 042

REACTIONS (2)
  - Simple partial seizures [Recovered/Resolved]
  - Condition aggravated [Recovered/Resolved]
